FAERS Safety Report 4943900-6 (Version None)
Quarter: 2006Q1

REPORT INFORMATION
  Report Type: 
  Country: None (occurrence: None)
  Receive Date: 20060310
  Receipt Date: 20060227
  Transmission Date: 20060701
  Serious: Yes (Other)
  Sender: FDA-Public Use
  Company Number: 2006029889

PATIENT
  Age: 65 Year
  Sex: Female

DRUGS (1)
  1. ZITHROMAX [Suspect]
     Indication: ILL-DEFINED DISORDER
     Dosage: 250 MG, 1 IN 1 D, ORAL
     Route: 048
     Dates: start: 20060224, end: 20060227

REACTIONS (2)
  - AGEUSIA [None]
  - ANOSMIA [None]
